FAERS Safety Report 6980783-7 (Version None)
Quarter: 2010Q3

REPORT INFORMATION
  Report Type: 
  Country: None (occurrence: None)
  Receive Date: 20100909
  Receipt Date: 20100902
  Transmission Date: 20110219
  Serious: Yes (Life-Threatening, Hospitalization)
  Sender: FDA-Public Use
  Company Number: GER/UKI/10/0015566

PATIENT
  Age: 88 Year
  Sex: Female

DRUGS (7)
  1. RISPERIDONE [Suspect]
     Indication: SENILE PSYCHOSIS
     Dosage: 1.5 MG, 1 IN 1 D, ORAL
     Route: 048
     Dates: start: 20100728
  2. AMLODIPINE [Concomitant]
  3. DOXAZOSIN MESYLATE [Concomitant]
  4. FLUCLOXCILLIN [Concomitant]
  5. FUROSEMIDE [Concomitant]
  6. MOXONIDINE [Concomitant]
  7. ZOPICLONE [Concomitant]

REACTIONS (7)
  - ASTHENIA [None]
  - BRADYCARDIA [None]
  - DRUG HYPERSENSITIVITY [None]
  - HYPOTENSION [None]
  - HYPOTHERMIA [None]
  - MALAISE [None]
  - OEDEMA PERIPHERAL [None]
